FAERS Safety Report 4563797-6 (Version None)
Quarter: 2005Q1

REPORT INFORMATION
  Report Type: 
  Country: None (occurrence: None)
  Receive Date: 20050121
  Receipt Date: 20041122
  Transmission Date: 20050727
  Serious: Yes (Other)
  Sender: FDA-Public Use
  Company Number: 2004098670

PATIENT
  Age: 42 Year
  Sex: Female
  Weight: 52.6173 kg

DRUGS (1)
  1. CELEBREX [Suspect]
     Indication: JOINT INJURY
     Dosage: 400 MG (200 MG, 2 IN 1 D), ORAL
     Route: 048
     Dates: start: 20030501, end: 20030101

REACTIONS (7)
  - ANXIETY [None]
  - CARDIAC DISORDER [None]
  - CYANOSIS [None]
  - FALL [None]
  - MYOCARDIAL INFARCTION [None]
  - PARALYSIS [None]
  - VOMITING [None]
